FAERS Safety Report 4758768-0 (Version None)
Quarter: 2005Q3

REPORT INFORMATION
  Report Type: 
  Country: None (occurrence: None)
  Receive Date: 20050831
  Receipt Date: 20050831
  Transmission Date: 20060218
  Serious: Yes (Hospitalization, Other)
  Sender: FDA-Public Use
  Company Number: None

PATIENT
  Sex: Female
  Weight: 87.9 kg

DRUGS (13)
  1. TOPOTECAN [Suspect]
     Indication: CERVIX CARCINOMA
     Dosage: SEE IMAGE
     Route: 042
     Dates: start: 20050810, end: 20050812
  2. TOPOTECAN [Suspect]
     Indication: SQUAMOUS CELL CARCINOMA
     Dosage: SEE IMAGE
     Route: 042
     Dates: start: 20050810, end: 20050812
  3. TOPOTECAN [Suspect]
     Indication: CERVIX CARCINOMA
     Dosage: SEE IMAGE
     Route: 042
     Dates: start: 20050823
  4. TOPOTECAN [Suspect]
     Indication: SQUAMOUS CELL CARCINOMA
     Dosage: SEE IMAGE
     Route: 042
     Dates: start: 20050823
  5. CISPLATIN [Suspect]
     Dosage: SEE IMAGE
     Route: 042
     Dates: start: 20050810, end: 20050810
  6. CISPLATIN [Suspect]
     Dosage: SEE IMAGE
     Route: 042
     Dates: start: 20050823
  7. TOPROL-XL [Concomitant]
  8. LISINOPRIL [Concomitant]
  9. LANTUS [Concomitant]
  10. OXYCODONE HCL [Concomitant]
  11. ARANESP [Concomitant]
  12. FLOVENT [Concomitant]
  13. SEROVENT [Concomitant]

REACTIONS (9)
  - CERVIX CARCINOMA RECURRENT [None]
  - DIZZINESS [None]
  - FATIGUE [None]
  - HAEMATOCRIT DECREASED [None]
  - HAEMOGLOBIN DECREASED [None]
  - NEUTROPHIL COUNT DECREASED [None]
  - PLATELET COUNT DECREASED [None]
  - SQUAMOUS CELL CARCINOMA [None]
  - WHITE BLOOD CELL COUNT DECREASED [None]
